FAERS Safety Report 8258850-X (Version None)
Quarter: 2012Q1

REPORT INFORMATION
  Report Type: 
  Country: None (occurrence: None)
  Receive Date: 20120322
  Receipt Date: 20120209
  Transmission Date: 20120608
  Serious: Yes (Hospitalization)
  Sender: FDA-Public Use
  Company Number: UTC-014575

PATIENT
  Age: 72 Year
  Sex: Female

DRUGS (4)
  1. COUMADIN [Concomitant]
  2. DIGOXIN [Concomitant]
  3. TYVASO [Suspect]
     Indication: PULMONARY ARTERIAL HYPERTENSION
     Dosage: 216 MCG (54 MCG,4 IN 1 D),INHALATION
     Route: 055
     Dates: start: 20110404
  4. ASPIRIN [Concomitant]

REACTIONS (2)
  - SYNCOPE [None]
  - ATRIAL FIBRILLATION [None]
